FAERS Safety Report 25751296 (Version 2)
Quarter: 2025Q3

REPORT INFORMATION
  Report Type: Report from Study
  Country: US (occurrence: US)
  Receive Date: 20250902
  Receipt Date: 20250924
  Transmission Date: 20251020
  Serious: Yes (Hospitalization)
  Sender: ALEXION PHARMACEUTICALS
  Company Number: US-AstraZeneca-CH-00937320A

PATIENT
  Sex: Male

DRUGS (1)
  1. ULTOMIRIS [Suspect]
     Active Substance: RAVULIZUMAB-CWVZ
     Indication: Myasthenia gravis
     Route: 065

REACTIONS (5)
  - Oxygen saturation decreased [Unknown]
  - Wheezing [Unknown]
  - Feeling abnormal [Unknown]
  - Lethargy [Unknown]
  - Hypoaesthesia [Unknown]
